FAERS Safety Report 10484799 (Version 3)
Quarter: 2014Q4

REPORT INFORMATION
  Report Type: Spontaneous
  Country: JP (occurrence: JP)
  Receive Date: 20140930
  Receipt Date: 20141024
  Transmission Date: 20150528
  Serious: No
  Sender: FDA-Public Use
  Company Number: PHJP2014JP001166

PATIENT
  Age: 82 Year
  Sex: Female

DRUGS (1)
  1. TEGRETOL [Suspect]
     Active Substance: CARBAMAZEPINE
     Indication: TRIGEMINAL NEURALGIA
     Dosage: 50 MG, UNK
     Route: 048
     Dates: start: 201201, end: 201207

REACTIONS (2)
  - Pain [Unknown]
  - Drug ineffective [Unknown]
